FAERS Safety Report 14412140 (Version 1)
Quarter: 2018Q1

REPORT INFORMATION
  Report Type: Spontaneous
  Country: US (occurrence: US)
  Receive Date: 20180117
  Receipt Date: 20180117
  Transmission Date: 20180509
  Serious: Yes (Life-Threatening, Other)
  Sender: FDA-Public Use
  Company Number: None

PATIENT
  Age: 53 Year
  Sex: Female
  Weight: 60.3 kg

DRUGS (2)
  1. MYOBLOC [Suspect]
     Active Substance: RIMABOTULINUMTOXINB
     Indication: PAIN
     Dosage: ?          OTHER FREQUENCY:ONE TIME;?
     Route: 008
     Dates: start: 20171005, end: 20171005
  2. MYOBLOC [Suspect]
     Active Substance: RIMABOTULINUMTOXINB
     Indication: MUSCLE SPASMS
     Dosage: ?          OTHER FREQUENCY:ONE TIME;?
     Route: 008
     Dates: start: 20171005, end: 20171005

REACTIONS (35)
  - Dysphagia [None]
  - Dry mouth [None]
  - Dizziness [None]
  - Myalgia [None]
  - Aphonia [None]
  - Dyspnoea [None]
  - Sinus pain [None]
  - Nausea [None]
  - Pneumonia [None]
  - Cough [None]
  - Nasopharyngitis [None]
  - Asthenia [None]
  - Diarrhoea [None]
  - Burning sensation [None]
  - Oropharyngeal pain [None]
  - Injection site pain [None]
  - Abdominal discomfort [None]
  - Influenza [None]
  - Chest pain [None]
  - Chills [None]
  - Muscular weakness [None]
  - Neck pain [None]
  - Upper-airway cough syndrome [None]
  - Ear disorder [None]
  - Musculoskeletal stiffness [None]
  - Dysphonia [None]
  - Somnolence [None]
  - Injection site infection [None]
  - Injection site swelling [None]
  - Sinusitis [None]
  - Arthralgia [None]
  - Throat tightness [None]
  - Vertigo [None]
  - Chest discomfort [None]
  - Headache [None]

NARRATIVE: CASE EVENT DATE: 20171005
